FAERS Safety Report 4723454-X (Version None)
Quarter: 2005Q3

REPORT INFORMATION
  Report Type: 
  Country: None (occurrence: None)
  Receive Date: 20050721
  Receipt Date: 20050721
  Transmission Date: 20060218
  Serious: Yes (Disabling)
  Sender: FDA-Public Use
  Company Number: None

PATIENT
  Age: 47 Year
  Sex: Female
  Weight: 53.5244 kg

DRUGS (2)
  1. ENBREL [Suspect]
     Indication: NEOPLASM MALIGNANT
     Dosage: 2 X WEEK SQ
     Route: 058
     Dates: start: 20030102, end: 20040115
  2. ENBREL [Suspect]
     Indication: RHEUMATOID ARTHRITIS
     Dosage: 2 X WEEK SQ
     Route: 058
     Dates: start: 20030102, end: 20040115

REACTIONS (3)
  - BREAST CANCER [None]
  - HYPOAESTHESIA [None]
  - PARAESTHESIA [None]
